FAERS Safety Report 9248333 (Version 1)
Quarter: 2013Q1

REPORT INFORMATION
  Report Type: Spontaneous
  Country: US (occurrence: None)
  Receive Date: 20130305
  Receipt Date: 20130305
  Transmission Date: 20140127
  Serious: Yes (Other)
  Sender: FDA-Public Use
  Company Number: 163-21880-12092360

PATIENT
  Age: 66 Year
  Sex: Male

DRUGS (1)
  1. REVLIMID (LENALIDOMIDE) [Suspect]
     Indication: PLASMA CELL MYELOMA
     Route: 048
     Dates: start: 20110912

REACTIONS (4)
  - White blood cell count decreased [None]
  - Full blood count decreased [None]
  - Laboratory test abnormal [None]
  - Blood disorder [None]
